FAERS Safety Report 15250866 (Version 1)
Quarter: 2018Q3

REPORT INFORMATION
  Report Type: Spontaneous
  Country: FR (occurrence: FR)
  Receive Date: 20180807
  Receipt Date: 20180807
  Transmission Date: 20181010
  Serious: Yes (Life-Threatening, Hospitalization, Other)
  Sender: FDA-Public Use
  Company Number: PHHY2016FR187106

PATIENT
  Age: 45 Year
  Sex: Male
  Weight: 86 kg

DRUGS (10)
  1. TOBRADEX [Concomitant]
     Active Substance: DEXAMETHASONE\TOBRAMYCIN
     Indication: EYE DISCHARGE
     Dosage: DOSAGE FORM: UNSPECIFIED
     Route: 065
  2. MAGNESIUM [Concomitant]
     Active Substance: MAGNESIUM
     Indication: MUSCLE SPASMS
     Dosage: DOSAGE FORM: UNSPECIFIED
     Route: 065
  3. VELCADE [Suspect]
     Active Substance: BORTEZOMIB
     Indication: PLASMA CELL MYELOMA
     Dosage: 5044 UG, UNK (DOSAGE FORM: LYOPHILIZED POWDER)
     Route: 058
     Dates: start: 20151215, end: 20160318
  4. WELLVONE [Concomitant]
     Active Substance: ATOVAQUONE
     Indication: INFECTION
     Dosage: DOSAGE FORM: UNSPECIFIED
     Route: 065
  5. LEDERFOLINE [Concomitant]
     Active Substance: LEUCOVORIN CALCIUM
     Indication: ADVERSE DRUG REACTION
     Dosage: DOSAGE FORM: UNSPECIFIED
     Route: 065
  6. DEXAMETHASONE. [Suspect]
     Active Substance: DEXAMETHASONE
     Indication: PLASMA CELL MYELOMA
     Dosage: 40 MG, QD (DOSAGE FORM: UNSPECIFIED)
     Route: 065
     Dates: start: 20151215, end: 20160322
  7. THALIDOMIDE [Suspect]
     Active Substance: THALIDOMIDE
     Indication: PLASMA CELL MYELOMA
     Dosage: 100 MG, QD (DOSAGE FORM: UNSPECIFIED)
     Route: 048
     Dates: start: 20151215, end: 20160406
  8. DARATUMUMAB [Suspect]
     Active Substance: DARATUMUMAB
     Indication: PLASMA CELL MYELOMA
     Dosage: 1296 MG, UNK (DOSAGE FORM: UNSPECIFIED)
     Route: 042
     Dates: start: 20151215, end: 20160322
  9. MELPHALAN. [Suspect]
     Active Substance: MELPHALAN
     Indication: PRODUCT USED FOR UNKNOWN INDICATION
     Dosage: DOSAGE FORM: UNSPECIFIED
     Route: 065
  10. ZELITREX [Concomitant]
     Active Substance: VALACYCLOVIR HYDROCHLORIDE
     Indication: INFECTION
     Dosage: DOSAGE FORM: UNSPECIFIED
     Route: 065

REACTIONS (3)
  - Sepsis [Recovered/Resolved]
  - Neutropenia [Unknown]
  - Cellulitis staphylococcal [Recovered/Resolved]

NARRATIVE: CASE EVENT DATE: 20160507
